FAERS Safety Report 4535238-6 (Version None)
Quarter: 2004Q4

REPORT INFORMATION
  Report Type: 
  Country: None (occurrence: None)
  Receive Date: 20041214
  Receipt Date: 20041001
  Transmission Date: 20050328
  Serious: No
  Sender: FDA-Public Use
  Company Number: 2004238399US

PATIENT
  Age: 65 Year
  Sex: Female
  Weight: 83.9 kg

DRUGS (9)
  1. BEXTRA [Suspect]
     Indication: BURSITIS
     Dosage: 10 MG, QD
     Dates: start: 20040930
  2. LITHIUM (LITHIUM) [Concomitant]
  3. WELLBUTRIN [Concomitant]
  4. PROZAC [Concomitant]
  5. ZYPREXA [Concomitant]
  6. VYTORIN [Concomitant]
  7. NORVASC [Concomitant]
  8. LEVOXYL [Concomitant]
  9. ASPIRIN [Concomitant]

REACTIONS (1)
  - PAIN EXACERBATED [None]
